FAERS Safety Report 17499667 (Version 1)
Quarter: 2020Q1

REPORT INFORMATION
  Report Type: Spontaneous
  Country: CN (occurrence: CN)
  Receive Date: 20200305
  Receipt Date: 20200305
  Transmission Date: 20200409
  Serious: Yes (Death)
  Sender: FDA-Public Use
  Company Number: CN-ROCHE-2562164

PATIENT
  Age: 56 Year
  Sex: Male

DRUGS (6)
  1. XELODA [Suspect]
     Active Substance: CAPECITABINE
     Dosage: XELIRI REGIMEN 2 CYCLES
     Route: 048
     Dates: start: 2009
  2. OXALIPLATIN. [Concomitant]
     Active Substance: OXALIPLATIN
     Indication: COLON CANCER
     Dosage: FOLFOX4 REGIMEN 5 CYCLES
     Route: 065
     Dates: start: 2005
  3. XELODA [Suspect]
     Active Substance: CAPECITABINE
     Indication: COLON CANCER
     Dosage: 4 CYCLES
     Route: 048
     Dates: start: 2004
  4. FLUOROURACIL. [Concomitant]
     Active Substance: FLUOROURACIL
     Indication: COLON CANCER
     Dosage: FOLFOX4 REGIMEN 5 CYCLES
     Route: 065
     Dates: start: 2005
  5. CALCIUM FOLINATE [Concomitant]
     Active Substance: LEUCOVORIN CALCIUM
     Indication: COLON CANCER
     Dosage: FOLFOX4 REGIMEN 5 CYCLES
     Route: 065
     Dates: start: 2005
  6. IRINOTECAN [Concomitant]
     Active Substance: IRINOTECAN
     Indication: COLON CANCER
     Dosage: XELIRI REGIMEN 2 CYCLES
     Route: 065
     Dates: start: 2009

REACTIONS (4)
  - Swelling [Unknown]
  - Superior vena cava syndrome [Unknown]
  - Death [Fatal]
  - Dyspnoea [Unknown]

NARRATIVE: CASE EVENT DATE: 20091022
